FAERS Safety Report 8236858-8 (Version None)
Quarter: 2012Q1

REPORT INFORMATION
  Report Type: 
  Country: None (occurrence: None)
  Receive Date: 20120327
  Receipt Date: 20111205
  Transmission Date: 20120608
  Serious: No
  Sender: FDA-Public Use
  Company Number: US-GLAXOSMITHKLINE-A0956693A

PATIENT
  Age: 71 Year
  Sex: Female

DRUGS (2)
  1. EXCEDRIN (MIGRAINE) [Concomitant]
  2. LAMICTAL [Suspect]
     Indication: MIGRAINE
     Dosage: 25MG PER DAY
     Route: 048
     Dates: start: 20111201, end: 20111204

REACTIONS (5)
  - DIZZINESS [None]
  - ANXIETY [None]
  - FEELING ABNORMAL [None]
  - EYE DISORDER [None]
  - OFF LABEL USE [None]
